FAERS Safety Report 11341983 (Version 5)
Quarter: 2016Q2

REPORT INFORMATION
  Report Type: Report from Study
  Country: JP (occurrence: JP)
  Receive Date: 20150805
  Receipt Date: 20160601
  Transmission Date: 20160815
  Serious: Yes (Other)
  Sender: FDA-Public Use
  Company Number: JP-JNJFOC-20150721505

PATIENT
  Age: 41 Year
  Sex: Male

DRUGS (14)
  1. CLARITH [Suspect]
     Active Substance: CLARITHROMYCIN
     Indication: OPPORTUNISTIC INFECTION PROPHYLAXIS
     Route: 048
     Dates: start: 20120523, end: 20130915
  2. PREZISTA [Suspect]
     Active Substance: DARUNAVIR ETHANOLATE
     Indication: HIV INFECTION
     Route: 048
     Dates: start: 20120525
  3. CLARITH [Suspect]
     Active Substance: CLARITHROMYCIN
     Indication: OPPORTUNISTIC INFECTION PROPHYLAXIS
     Route: 048
     Dates: start: 20120517, end: 20120522
  4. BENAMBAX [Concomitant]
     Active Substance: PENTAMIDINE
     Indication: ANTIFUNGAL PROPHYLAXIS
     Route: 065
     Dates: start: 20120620, end: 20120827
  5. TRUVADA [Suspect]
     Active Substance: EMTRICITABINE\TENOFOVIR DISOPROXIL FUMARATE
     Indication: HIV INFECTION
     Route: 048
     Dates: start: 20120525
  6. ZOLPIDEM TARTRATE. [Concomitant]
     Active Substance: ZOLPIDEM TARTRATE
     Indication: INSOMNIA
     Route: 048
     Dates: start: 20140919
  7. PREZISTA [Suspect]
     Active Substance: DARUNAVIR ETHANOLATE
     Indication: HIV INFECTION
     Route: 048
     Dates: start: 20140325
  8. VENETLIN [Concomitant]
     Active Substance: ALBUTEROL SULFATE
     Indication: ANTIFUNGAL PROPHYLAXIS
     Route: 055
     Dates: start: 20120828, end: 20140619
  9. NORVIR [Suspect]
     Active Substance: RITONAVIR
     Indication: HIV INFECTION
     Route: 048
     Dates: start: 20120525
  10. MYSLEE [Concomitant]
     Active Substance: ZOLPIDEM TARTRATE
     Indication: INSOMNIA
     Route: 048
     Dates: start: 20121106, end: 20140123
  11. MYSLEE [Concomitant]
     Active Substance: ZOLPIDEM TARTRATE
     Indication: INSOMNIA
     Route: 048
     Dates: start: 20140919
  12. VENETLIN [Concomitant]
     Active Substance: ALBUTEROL SULFATE
     Indication: ANTIFUNGAL PROPHYLAXIS
     Route: 055
     Dates: start: 20140620
  13. VENETLIN [Concomitant]
     Active Substance: ALBUTEROL SULFATE
     Indication: ANTIFUNGAL PROPHYLAXIS
     Route: 055
     Dates: start: 20120620, end: 20120827
  14. BENAMBAX [Concomitant]
     Active Substance: PENTAMIDINE
     Indication: ANTIFUNGAL PROPHYLAXIS
     Route: 065
     Dates: start: 20120828

REACTIONS (5)
  - Prurigo [Not Recovered/Not Resolved]
  - Sudden hearing loss [Not Recovered/Not Resolved]
  - Renal function test abnormal [Not Recovered/Not Resolved]
  - Hypertriglyceridaemia [Not Recovered/Not Resolved]
  - Hepatic function abnormal [Not Recovered/Not Resolved]

NARRATIVE: CASE EVENT DATE: 20120718
